FAERS Safety Report 9684325 (Version 3)
Quarter: 2014Q1

REPORT INFORMATION
  Report Type: Spontaneous
  Country: GB (occurrence: GB)
  Receive Date: 20131112
  Receipt Date: 20140207
  Transmission Date: 20141002
  Serious: Yes (Other)
  Sender: FDA-Public Use
  Company Number: GB-ACTAVISPR-2013-20265

PATIENT
  Age: 83 Year
  Sex: Female

DRUGS (2)
  1. PREDNISOLONE [Suspect]
     Indication: UVEITIS
     Dosage: 10 MG, DAILY
     Route: 048
     Dates: start: 20121112, end: 201301
  2. MAXIDEX /00016001/ [Suspect]
     Indication: UVEITIS
     Dosage: UNK
     Route: 047

REACTIONS (6)
  - Depressed mood [Not Recovered/Not Resolved]
  - Mental impairment [Not Recovered/Not Resolved]
  - Abulia [Not Recovered/Not Resolved]
  - Confusional state [Not Recovered/Not Resolved]
  - Memory impairment [Not Recovered/Not Resolved]
  - Anxiety [Unknown]
